FAERS Safety Report 5207698-9 (Version None)
Quarter: 2007Q1

REPORT INFORMATION
  Report Type: 
  Country: None (occurrence: None)
  Receive Date: 20070112
  Receipt Date: 20070103
  Transmission Date: 20070707
  Serious: Yes (Other)
  Sender: FDA-Public Use
  Company Number: US-PFIZER INC-2007001468

PATIENT
  Sex: Female
  Weight: 80.7 kg

DRUGS (3)
  1. LYRICA [Suspect]
     Indication: NEUROPATHY
  2. THYROID TAB [Concomitant]
  3. LOPRESSOR [Concomitant]

REACTIONS (4)
  - INSOMNIA [None]
  - INTERVERTEBRAL DISC PROTRUSION [None]
  - PAIN [None]
  - WEIGHT INCREASED [None]
